FAERS Safety Report 9470991 (Version 2)
Quarter: 2013Q3

REPORT INFORMATION
  Report Type: Spontaneous
  Country: NO (occurrence: NO)
  Receive Date: 20130822
  Receipt Date: 20130902
  Transmission Date: 20140515
  Serious: Yes (Hospitalization, Other)
  Sender: FDA-Public Use
  Company Number: NO-JNJFOC-20130811016

PATIENT
  Age: 82 Year
  Sex: Male

DRUGS (6)
  1. RISPERDAL [Suspect]
     Indication: PSYCHOTIC DISORDER
     Dosage: 1 MG IN THE MORNING AND 1 MG IN THE EVENING
     Route: 065
     Dates: start: 20130805
  2. PARACETAMOL [Concomitant]
     Route: 065
  3. CODEINE [Concomitant]
     Route: 065
  4. ACETYLSALICYLIC ACID [Concomitant]
     Route: 065
  5. MELATONIN [Concomitant]
     Route: 065
     Dates: start: 20130812
  6. ACETYLCYSTEIN [Concomitant]
     Indication: PRODUCT USED FOR UNKNOWN INDICATION
     Route: 065

REACTIONS (5)
  - Embolism [Unknown]
  - Transient ischaemic attack [Unknown]
  - Suicidal ideation [Unknown]
  - Psychotic disorder [Unknown]
  - Haemoglobin decreased [Unknown]
